FAERS Safety Report 6267605-7 (Version None)
Quarter: 2009Q3

REPORT INFORMATION
  Report Type: 
  Country: None (occurrence: None)
  Receive Date: 20090714
  Receipt Date: 20090703
  Transmission Date: 20100115
  Serious: Yes (Hospitalization)
  Sender: FDA-Public Use
  Company Number: FR-ELI_LILLY_AND_COMPANY-FR200907000746

PATIENT
  Age: 82 Year
  Sex: Female

DRUGS (2)
  1. FORTEO [Suspect]
     Indication: OSTEOPOROSIS
     Dosage: 20 UG, DAILY (1/D)
     Route: 065
     Dates: start: 20090408, end: 20090429
  2. FORTEO [Suspect]
     Dosage: 20 UG, 2/D
     Route: 065
     Dates: start: 20090515

REACTIONS (2)
  - FALL [None]
  - HUMERUS FRACTURE [None]
